FAERS Safety Report 6832770-7 (Version None)
Quarter: 2010Q3

REPORT INFORMATION
  Report Type: 
  Country: None (occurrence: None)
  Receive Date: 20100712
  Receipt Date: 20070321
  Transmission Date: 20110219
  Serious: No
  Sender: FDA-Public Use
  Company Number: US-PFIZER INC-2007023825

PATIENT
  Sex: Female
  Weight: 90.26 kg

DRUGS (5)
  1. CHANTIX [Suspect]
     Indication: SMOKING CESSATION THERAPY
     Route: 048
     Dates: start: 20070226, end: 20070307
  2. PRINZIDE [Concomitant]
     Indication: BLOOD PRESSURE
     Route: 048
  3. ACETYLSALICYLIC ACID [Concomitant]
     Route: 048
  4. VITAMINS [Concomitant]
     Route: 048
  5. STOOL SOFTENER [Concomitant]
     Route: 048

REACTIONS (1)
  - URTICARIA [None]
